FAERS Safety Report 5418050-5 (Version None)
Quarter: 2007Q3

REPORT INFORMATION
  Report Type: 
  Country: None (occurrence: None)
  Receive Date: 20070815
  Receipt Date: 20070807
  Transmission Date: 20080115
  Serious: Yes (Life-Threatening, Hospitalization, Disabling)
  Sender: FDA-Public Use
  Company Number: 236563K07USA

PATIENT
  Age: 43 Year
  Sex: Male

DRUGS (3)
  1. REBIF [Suspect]
     Indication: MULTIPLE SCLEROSIS
     Dosage: 8.8 MCG, ONCE, SUBCUTANEOUS
     Route: 058
     Dates: start: 20061215, end: 20061215
  2. LORAZEPAM [Concomitant]
  3. PREDNISONE [Concomitant]

REACTIONS (6)
  - ABASIA [None]
  - BEDRIDDEN [None]
  - COLLAPSE OF LUNG [None]
  - COMA [None]
  - PNEUMONIA ASPIRATION [None]
  - PNEUMONIA STAPHYLOCOCCAL [None]
